FAERS Safety Report 8946006 (Version 2)
Quarter: 2013Q1

REPORT INFORMATION
  Report Type: Spontaneous
  Country: US (occurrence: US)
  Receive Date: 20121205
  Receipt Date: 20130130
  Transmission Date: 20140127
  Serious: Yes (Hospitalization)
  Sender: FDA-Public Use
  Company Number: US-BAYER-2012-125866

PATIENT
  Age: 46 Year
  Sex: Female
  Weight: 124 kg

DRUGS (6)
  1. YAZ [Suspect]
     Indication: ORAL CONTRACEPTION
  2. GIANVI [Suspect]
  3. LOVASTATIN [Concomitant]
  4. PROZAC [Concomitant]
  5. DYAZIDE [Concomitant]
  6. METFORMIN [Concomitant]

REACTIONS (2)
  - Deep vein thrombosis [None]
  - Pulmonary embolism [None]
